FAERS Safety Report 20855730 (Version 4)
Quarter: 2023Q2

REPORT INFORMATION
  Report Type: Spontaneous
  Country: US (occurrence: US)
  Receive Date: 20220520
  Receipt Date: 20230607
  Transmission Date: 20230722
  Serious: Yes (Other)
  Sender: FDA-Public Use
  Company Number: US-PFIZER INC-202200714353

PATIENT
  Age: 58 Year
  Sex: Female

DRUGS (1)
  1. INLYTA [Suspect]
     Active Substance: AXITINIB
     Dosage: 5 MG

REACTIONS (7)
  - Lower limb fracture [Unknown]
  - Pain [Unknown]
  - Wound [Recovered/Resolved]
  - Peripheral swelling [Not Recovered/Not Resolved]
  - Stomatitis [Unknown]
  - Tongue disorder [Unknown]
  - Groin infection [Recovered/Resolved]
